FAERS Safety Report 5170472-6 (Version None)
Quarter: 2006Q4

REPORT INFORMATION
  Report Type: 
  Country: None (occurrence: None)
  Receive Date: 20061205
  Receipt Date: 20061120
  Transmission Date: 20070319
  Serious: Yes (Other)
  Sender: FDA-Public Use
  Company Number: 2006142461

PATIENT
  Age: 55 Year
  Sex: Male

DRUGS (5)
  1. GABAPENTIN [Suspect]
     Dosage: 900 MG, ORAL
     Route: 048
     Dates: start: 20061010
  2. CLONAZEPAM [Concomitant]
  3. CLOBAZAM [Concomitant]
  4. DIAMOX [Concomitant]
  5. PHENYTOIN [Concomitant]

REACTIONS (2)
  - EPILEPSY [None]
  - SOMNOLENCE [None]
